FAERS Safety Report 7907636-1 (Version None)
Quarter: 2011Q4

REPORT INFORMATION
  Report Type: 
  Country: None (occurrence: None)
  Receive Date: 20111109
  Receipt Date: 20111026
  Transmission Date: 20120403
  Serious: Yes (Hospitalization)
  Sender: FDA-Public Use
  Company Number: LTI2011A00282

PATIENT
  Age: 70 Year
  Sex: Male

DRUGS (1)
  1. ACTOS [Suspect]
     Indication: DIABETES MELLITUS
     Dosage: 1 DF (1 DF, I IN 1 D)
     Route: 048
     Dates: start: 20061001, end: 20110401

REACTIONS (3)
  - PHIMOSIS [None]
  - BLADDER CANCER [None]
  - NEOPLASM PROGRESSION [None]
